FAERS Safety Report 13936113 (Version 1)
Quarter: 2017Q3

REPORT INFORMATION
  Report Type: Spontaneous
  Country: CN (occurrence: CN)
  Receive Date: 20170905
  Receipt Date: 20170905
  Transmission Date: 20171127
  Serious: Yes (Hospitalization)
  Sender: FDA-Public Use
  Company Number: CN-PFIZER INC-2017375274

PATIENT
  Age: 47 Year
  Sex: Female
  Weight: 53 kg

DRUGS (2)
  1. PHARMORUBICIN [Suspect]
     Active Substance: EPIRUBICIN
     Indication: CHEMOTHERAPY
     Dosage: 160 MG, 1X/DAY
     Route: 042
     Dates: start: 20170703, end: 20170703
  2. CYCLOPHOSPHAMIDE. [Suspect]
     Active Substance: CYCLOPHOSPHAMIDE
     Indication: CHEMOTHERAPEUTIC DRUG LEVEL THERAPEUTIC
     Dosage: 900 MG, 1X/DAY
     Route: 042
     Dates: start: 20170703, end: 20170703

REACTIONS (3)
  - Agranulocytosis [Recovering/Resolving]
  - Gingival swelling [Recovering/Resolving]
  - Pyrexia [Recovering/Resolving]

NARRATIVE: CASE EVENT DATE: 20170710
